FAERS Safety Report 5421482-2 (Version None)
Quarter: 2007Q3

REPORT INFORMATION
  Report Type: 
  Country: None (occurrence: None)
  Receive Date: 20070817
  Receipt Date: 20070807
  Transmission Date: 20080115
  Serious: Yes (Other)
  Sender: FDA-Public Use
  Company Number: B0483365A

PATIENT
  Age: 35 Year
  Sex: Male

DRUGS (3)
  1. CHLORPROMAZINE HCL [Suspect]
  2. HALOPERIDOL [Suspect]
  3. PERPHENAZINE [Suspect]

REACTIONS (1)
  - NEUROLEPTIC MALIGNANT SYNDROME [None]
